FAERS Safety Report 6723957-2 (Version None)
Quarter: 2010Q2

REPORT INFORMATION
  Report Type: 
  Country: None (occurrence: None)
  Receive Date: 20100513
  Receipt Date: 20100504
  Transmission Date: 20101027
  Serious: Yes (Hospitalization)
  Sender: FDA-Public Use
  Company Number: PHEH2010US03063

PATIENT
  Sex: Female

DRUGS (1)
  1. RECLAST [Suspect]
     Indication: OSTEOPOROSIS
     Dosage: 5 UNK, UNK
     Route: 042
     Dates: start: 20100304

REACTIONS (5)
  - ARTHRALGIA [None]
  - CELLULITIS [None]
  - JOINT SWELLING [None]
  - PYREXIA [None]
  - SYNOVITIS [None]
